FAERS Safety Report 9666404 (Version 1)
Quarter: 2013Q4

REPORT INFORMATION
  Report Type: Spontaneous
  Country: US (occurrence: US)
  Receive Date: 20131104
  Receipt Date: 20131104
  Transmission Date: 20140711
  Serious: No
  Sender: FDA-Public Use
  Company Number: US-BIOGENIDEC-2013BI085864

PATIENT
  Age: 58 Year
  Sex: Female

DRUGS (7)
  1. TECFIDERA [Suspect]
     Indication: MULTIPLE SCLEROSIS
     Route: 048
     Dates: start: 20130513
  2. OMPRAZOLE [Concomitant]
  3. FLUTICASONE PROPIONATE [Concomitant]
  4. GABAPENTIN [Concomitant]
  5. DIVALPROEX [Concomitant]
  6. SODIUM AMANTADINE HCL [Concomitant]
  7. BENADRYL [Concomitant]

REACTIONS (4)
  - Dyspepsia [Unknown]
  - Abdominal distension [Unknown]
  - Eructation [Unknown]
  - Flatulence [Unknown]
